FAERS Safety Report 4747749-9 (Version None)
Quarter: 2005Q3

REPORT INFORMATION
  Report Type: 
  Country: None (occurrence: None)
  Receive Date: 20050818
  Receipt Date: 20050620
  Transmission Date: 20060218
  Serious: Yes (Hospitalization)
  Sender: FDA-Public Use
  Company Number: US-SOLVAY-00205002011

PATIENT
  Age: 41 Year
  Sex: Male
  Weight: 98 kg

DRUGS (5)
  1. TOPAMAX [Concomitant]
     Indication: CONVULSION
     Dosage: DAILY DOSE: 200 MILLIGRAM(S)
     Route: 048
     Dates: start: 19950101
  2. ANDROGEL [Suspect]
     Indication: BLOOD TESTOSTERONE DECREASED
     Dosage: DAILY DOSE: 5 GRAM(S)
     Route: 062
     Dates: start: 20020101, end: 20030501
  3. PHENOBARBITAL [Concomitant]
     Indication: CONVULSION
     Dosage: DAILY DOSE: 45 MILLIGRAM(S)
     Route: 048
     Dates: start: 19950101
  4. DILANTIN [Concomitant]
     Indication: CONVULSION
     Dosage: DAILY DOSE: 200 MILLIGRAM(S)
     Route: 048
     Dates: start: 19950101
  5. CORTISONE ACETATE TAB [Concomitant]
     Indication: CONVULSION
     Dosage: DAILY DOSE: 45 MILLIGRAM(S)
     Route: 048
     Dates: start: 19950101

REACTIONS (2)
  - CONVULSION [None]
  - THERAPEUTIC RESPONSE UNEXPECTED [None]
